FAERS Safety Report 18943666 (Version 3)
Quarter: 2021Q2

REPORT INFORMATION
  Report Type: Spontaneous
  Country: JP (occurrence: JP)
  Receive Date: 20210226
  Receipt Date: 20210512
  Transmission Date: 20210717
  Serious: Yes (Other)
  Sender: FDA-Public Use
  Company Number: JP-ROCHE-2777641

PATIENT
  Age: 76 Year
  Sex: Female
  Weight: 40 kg

DRUGS (18)
  1. URSO [Concomitant]
     Active Substance: URSODIOL
     Route: 065
     Dates: start: 20200325
  2. URSO [Concomitant]
     Active Substance: URSODIOL
     Route: 065
  3. URSO [Concomitant]
     Active Substance: URSODIOL
     Route: 065
  4. AVASTIN [Suspect]
     Active Substance: BEVACIZUMAB
     Indication: HEPATOCELLULAR CARCINOMA
     Route: 041
     Dates: start: 20210107, end: 2021
  5. URSO [Concomitant]
     Active Substance: URSODIOL
     Route: 065
  6. TECENTRIQ [Suspect]
     Active Substance: ATEZOLIZUMAB
     Route: 041
     Dates: start: 20210318
  7. SPIRONOLACTONE. [Suspect]
     Active Substance: SPIRONOLACTONE
     Indication: PRODUCT USED FOR UNKNOWN INDICATION
     Route: 048
     Dates: start: 20201216
  8. LOSARTAN POTASSIUM. [Concomitant]
     Active Substance: LOSARTAN POTASSIUM
  9. NEXIUM [Concomitant]
     Active Substance: ESOMEPRAZOLE MAGNESIUM
     Dates: start: 20200528
  10. URSO [Concomitant]
     Active Substance: URSODIOL
     Route: 065
     Dates: start: 20200316
  11. URSO [Concomitant]
     Active Substance: URSODIOL
     Route: 065
  12. MIYA?BM [Concomitant]
     Active Substance: CLOSTRIDIUM BUTYRICUM SPORES STRAIN M-55
     Dates: start: 20200731
  13. AVASTIN [Suspect]
     Active Substance: BEVACIZUMAB
     Route: 041
     Dates: start: 20210318
  14. URSO [Concomitant]
     Active Substance: URSODIOL
     Route: 065
  15. THYRADIN [Concomitant]
     Active Substance: LEVOTHYROXINE
  16. TECENTRIQ [Suspect]
     Active Substance: ATEZOLIZUMAB
     Indication: HEPATOCELLULAR CARCINOMA
     Route: 041
     Dates: start: 20210107, end: 2021
  17. NIFEDIPINE. [Concomitant]
     Active Substance: NIFEDIPINE
     Dates: start: 20200325
  18. HYDROCHLOROTHIAZIDE. [Concomitant]
     Active Substance: HYDROCHLOROTHIAZIDE

REACTIONS (1)
  - Renal impairment [Recovered/Resolved]

NARRATIVE: CASE EVENT DATE: 20210128
